FAERS Safety Report 10030841 (Version 2)
Quarter: 2014Q1

REPORT INFORMATION
  Report Type: Spontaneous
  Country: US (occurrence: US)
  Receive Date: 20140323
  Receipt Date: 20140323
  Transmission Date: 20141002
  Serious: No
  Sender: FDA-Public Use
  Company Number: US-ALLERGAN-1314730US

PATIENT
  Age: 59 Year
  Sex: Female

DRUGS (1)
  1. LATISSE 0.03% [Suspect]
     Indication: HYPOTRICHOSIS
     Dosage: 1-2 GTT, QHS
     Route: 061
     Dates: start: 20130910, end: 20130911

REACTIONS (4)
  - Rash [Recovered/Resolved]
  - Eyelid exfoliation [Unknown]
  - Ocular hyperaemia [Not Recovered/Not Resolved]
  - Eye pruritus [Unknown]
